FAERS Safety Report 4809258-8 (Version None)
Quarter: 2005Q4

REPORT INFORMATION
  Report Type: 
  Country: None (occurrence: None)
  Receive Date: 20051021
  Receipt Date: 20051013
  Transmission Date: 20060501
  Serious: Yes (Hospitalization)
  Sender: FDA-Public Use
  Company Number: SGB1-2005-00467

PATIENT
  Age: 72 Year
  Sex: Male

DRUGS (2)
  1. ANAGRELIDE HCL [Suspect]
     Dosage: 1 DF, 1X/DAY; QD; ORAL
     Route: 048
     Dates: start: 20050720, end: 20050816
  2. ETOPOSIDE [Concomitant]

REACTIONS (3)
  - CHLAMYDIA SEROLOGY POSITIVE [None]
  - INTERSTITIAL LUNG DISEASE [None]
  - PNEUMONIA [None]
